FAERS Safety Report 10534584 (Version 2)
Quarter: 2014Q4

REPORT INFORMATION
  Report Type: Report from Study
  Country: US (occurrence: US)
  Receive Date: 20141022
  Receipt Date: 20141103
  Transmission Date: 20150529
  Serious: Yes (Hospitalization, Other)
  Sender: FDA-Public Use
  Company Number: PHEH2014US020379

PATIENT
  Sex: Female

DRUGS (4)
  1. GLEEVEC [Suspect]
     Active Substance: IMATINIB MESYLATE
     Indication: PRODUCT USED FOR UNKNOWN INDICATION
     Route: 048
  2. LOPRESSOR [Suspect]
     Active Substance: METOPROLOL TARTRATE
     Indication: BLOOD PRESSURE
     Route: 065
  3. TASIGNA [Suspect]
     Active Substance: NILOTINIB
     Indication: PRODUCT USED FOR UNKNOWN INDICATION
     Dosage: 2 DF, BID
     Route: 048
  4. SPRYCEL [Suspect]
     Active Substance: DASATINIB
     Indication: PRODUCT USED FOR UNKNOWN INDICATION
     Route: 065

REACTIONS (16)
  - Pleural effusion [Unknown]
  - Atrial fibrillation [Unknown]
  - Visual impairment [Unknown]
  - Blood pressure abnormal [Unknown]
  - Nausea [Unknown]
  - Headache [Unknown]
  - Pneumothorax [Unknown]
  - Dizziness [Unknown]
  - Vision blurred [Unknown]
  - Insomnia [Unknown]
  - Nightmare [Recovered/Resolved]
  - Migraine [Unknown]
  - Visual acuity reduced [Unknown]
  - Diarrhoea [Unknown]
  - Fluid retention [Unknown]
  - Weight decreased [Unknown]
